FAERS Safety Report 4676872-2 (Version None)
Quarter: 2005Q2

REPORT INFORMATION
  Report Type: 
  Country: None (occurrence: None)
  Receive Date: 20050527
  Receipt Date: 20050516
  Transmission Date: 20051028
  Serious: Yes (Hospitalization, Other)
  Sender: FDA-Public Use
  Company Number: 2005064623

PATIENT
  Age: 85 Year
  Sex: Female
  Weight: 68.0396 kg

DRUGS (16)
  1. BEXTRA [Suspect]
     Indication: RHEUMATOID ARTHRITIS
     Dosage: 20 MG (20 MG, 1 IN 1 D)
     Dates: end: 20050101
  2. METHOTREXATE [Concomitant]
  3. CLOPIDOGREL BISULFATE [Concomitant]
  4. HYZAAR [Concomitant]
  5. LEVOTHYROXINE SODIUM [Concomitant]
  6. LETROZOLE (LETROZOLE) [Concomitant]
  7. PANTOPRAZOLE SODIUM [Concomitant]
  8. ZOLPIDEM TARTRATE [Concomitant]
  9. CALAMINE/CAMPHOR/DIPHENHYDRAMINE (CALAMINE, CAMPHOR, DIPHENHYDRAMINE) [Concomitant]
  10. SERETIDE MITE 9FLUTICASONE PROPIONATE, SALMETEROL XINAFOATE) [Concomitant]
  11. TUSSIN DM (DEXTROMETHORPHAN HYDROBROMIDE, GUAIFENESIN) [Concomitant]
  12. ALL OTHER THERAPEUTIC PRODUCTS (ALL OTHER THERAPEUTIC PRODUCTS) [Concomitant]
  13. MAGNESIUM CHLORIDE ANHYDROUS (MAGNESIUM CHLORIDE ANHYDROUS) [Concomitant]
  14. POTASSIUM ACETATE [Concomitant]
  15. ACETAMINOPHEN [Concomitant]
  16. FUROSEMIDE [Concomitant]

REACTIONS (2)
  - ASTHENIA [None]
  - BLOOD SODIUM DECREASED [None]
